FAERS Safety Report 25213675 (Version 1)
Quarter: 2025Q2

REPORT INFORMATION
  Report Type: Spontaneous
  Country: MA (occurrence: MA)
  Receive Date: 20250418
  Receipt Date: 20250418
  Transmission Date: 20250717
  Serious: Yes (Death, Other)
  Sender: PFIZER
  Company Number: MA-PFIZER INC-202500078209

PATIENT
  Sex: Female

DRUGS (1)
  1. IBRANCE [Suspect]
     Active Substance: PALBOCICLIB
     Dates: start: 20231011

REACTIONS (3)
  - Death [Fatal]
  - Cardiac dysfunction [Unknown]
  - Lung disorder [Unknown]

NARRATIVE: CASE EVENT DATE: 20250101
